FAERS Safety Report 25171121 (Version 3)
Quarter: 2025Q2

REPORT INFORMATION
  Report Type: Spontaneous
  Country: US (occurrence: US)
  Receive Date: 20250408
  Receipt Date: 20250516
  Transmission Date: 20250716
  Serious: Yes (Hospitalization, Other)
  Sender: BIOGEN
  Company Number: US-BIOGENIDEC-2009BI027212

PATIENT
  Age: 44 Year
  Sex: Female
  Weight: 104.42 kg

DRUGS (5)
  1. TYSABRI [Suspect]
     Active Substance: NATALIZUMAB
     Indication: Multiple sclerosis
     Route: 050
     Dates: start: 20071114
  2. TYSABRI [Suspect]
     Active Substance: NATALIZUMAB
     Route: 050
     Dates: start: 2012
  3. TYSABRI [Suspect]
     Active Substance: NATALIZUMAB
     Route: 050
     Dates: start: 20071114, end: 20120618
  4. TYSABRI [Suspect]
     Active Substance: NATALIZUMAB
     Route: 050
     Dates: start: 20250508
  5. TAGAMET [Concomitant]
     Active Substance: CIMETIDINE
     Indication: Premedication
     Route: 050

REACTIONS (15)
  - Dysphagia [Recovered/Resolved]
  - Hyperhidrosis [Recovered/Resolved]
  - Multiple sclerosis relapse [Unknown]
  - Dyspnoea [Recovered/Resolved]
  - Infection [Recovered/Resolved]
  - Substance-induced psychotic disorder [Recovered/Resolved]
  - Energy increased [Recovered/Resolved]
  - Stress [Recovered/Resolved]
  - Panic attack [Recovered/Resolved]
  - Urticaria [Recovered/Resolved]
  - Fatigue [Recovered/Resolved]
  - Rash [Recovered/Resolved]
  - Nasopharyngitis [Not Recovered/Not Resolved]
  - Weight increased [Unknown]
  - Hypersensitivity [Unknown]

NARRATIVE: CASE EVENT DATE: 20071101
